FAERS Safety Report 24041794 (Version 3)
Quarter: 2024Q4

REPORT INFORMATION
  Report Type: Spontaneous
  Country: US (occurrence: US)
  Receive Date: 20240702
  Receipt Date: 20241121
  Transmission Date: 20250114
  Serious: No
  Sender: SANOFI AVENTIS
  Company Number: US-SA-SAC20240625000275

PATIENT
  Age: 3 Year
  Sex: Male

DRUGS (1)
  1. DUPIXENT [Suspect]
     Active Substance: DUPILUMAB
     Indication: Eczema
     Dosage: 300 MG, Q4W
     Route: 058
     Dates: start: 202404

REACTIONS (5)
  - Rash macular [Unknown]
  - Eczema [Recovering/Resolving]
  - Erythema [Unknown]
  - Pruritus [Unknown]
  - Swelling [Unknown]

NARRATIVE: CASE EVENT DATE: 20240101
